FAERS Safety Report 6738074-5 (Version None)
Quarter: 2010Q2

REPORT INFORMATION
  Report Type: 
  Country: None (occurrence: None)
  Receive Date: 20100520
  Receipt Date: 20100517
  Transmission Date: 20101027
  Serious: Yes (Death, Life-Threatening, Hospitalization, Disabling)
  Sender: FDA-Public Use
  Company Number: SP02925

PATIENT
  Age: 58 Year
  Sex: Male
  Weight: 55.7924 kg

DRUGS (3)
  1. XIFAXAN [Suspect]
     Indication: HEPATIC ENCEPHALOPATHY
     Dosage: 1200 MG (400 MG, 3 IN 1 D), ORAL
     Route: 048
     Dates: start: 20100315, end: 20100511
  2. LASIX [Concomitant]
  3. SPIRONOLACTONE [Concomitant]

REACTIONS (1)
  - OESOPHAGEAL VARICES HAEMORRHAGE [None]
